APPROVED DRUG PRODUCT: RALDESY
Active Ingredient: TRAZODONE HYDROCHLORIDE
Strength: 10MG/ML
Dosage Form/Route: SOLUTION;ORAL
Application: N218637 | Product #001
Applicant: KAMAT PHARMATECH LLC
Approved: Nov 26, 2024 | RLD: Yes | RS: Yes | Type: RX

PATENTS:
Patent 8133893 | Expires: Mar 13, 2029